FAERS Safety Report 8087452-3 (Version None)
Quarter: 2012Q1

REPORT INFORMATION
  Report Type: 
  Country: None (occurrence: None)
  Receive Date: 20120128
  Receipt Date: 20110525
  Transmission Date: 20120608
  Serious: No
  Sender: FDA-Public Use
  Company Number: US-ABBOTT-11P-163-0728040-00

PATIENT
  Age: 49 Year
  Sex: Female

DRUGS (12)
  1. FOLIC ACID [Concomitant]
     Indication: PRODUCT USED FOR UNKNOWN INDICATION
  2. HUMIRA [Suspect]
     Indication: RHEUMATOID ARTHRITIS
     Dates: start: 20110101
  3. METHOTREXATE [Concomitant]
     Indication: PRODUCT USED FOR UNKNOWN INDICATION
  4. ELMIRON [Concomitant]
     Indication: PRODUCT USED FOR UNKNOWN INDICATION
  5. ZETIA [Concomitant]
     Indication: PRODUCT USED FOR UNKNOWN INDICATION
  6. MEDROL [Concomitant]
     Indication: PRODUCT USED FOR UNKNOWN INDICATION
  7. ZIAC [Concomitant]
     Indication: PRODUCT USED FOR UNKNOWN INDICATION
  8. MONOPRIL [Concomitant]
     Indication: PRODUCT USED FOR UNKNOWN INDICATION
  9. SINGULAIR [Concomitant]
     Indication: PRODUCT USED FOR UNKNOWN INDICATION
  10. LIPITOR [Concomitant]
     Indication: PRODUCT USED FOR UNKNOWN INDICATION
  11. MOBIC [Concomitant]
     Indication: PRODUCT USED FOR UNKNOWN INDICATION
  12. CYMBALTA [Concomitant]
     Indication: PRODUCT USED FOR UNKNOWN INDICATION

REACTIONS (5)
  - MONOCLONAL GAMMOPATHY [None]
  - NASAL CONGESTION [None]
  - INJECTION SITE HAEMATOMA [None]
  - INJECTION SITE HAEMORRHAGE [None]
  - RHINORRHOEA [None]
